FAERS Safety Report 8674819 (Version 4)
Quarter: 2012Q4

REPORT INFORMATION
  Report Type: Report from Study
  Country: JP (occurrence: JP)
  Receive Date: 20120720
  Receipt Date: 20120906
  Transmission Date: 20130627
  Serious: Yes (Hospitalization)
  Sender: FDA-Public Use
  Company Number: JP-AMGEN-JPNCT2012044077

PATIENT
  Age: 45 Year
  Sex: Female
  Weight: 66.5 kg

DRUGS (5)
  1. DENOSUMAB [Suspect]
     Indication: BREAST CANCER
     Dosage: 120 mg, UNK
     Route: 058
     Dates: start: 20110106
  2. FUROSEMIDE [Concomitant]
     Dosage: 40 mg, UNK
     Route: 048
     Dates: start: 20110630
  3. CALCIUM [Concomitant]
     Dosage: 610 mg, UNK
     Route: 048
     Dates: start: 20110106
  4. VITAMIN D [Concomitant]
     Dosage: 400 IU, UNK
     Route: 048
     Dates: start: 20110106
  5. TAMOXIFEN [Concomitant]
     Dosage: UNK
     Dates: start: 20110818

REACTIONS (1)
  - Cellulitis [Recovered/Resolved]
